FAERS Safety Report 4783755-6 (Version None)
Quarter: 2005Q3

REPORT INFORMATION
  Report Type: 
  Country: None (occurrence: None)
  Receive Date: 20050928
  Receipt Date: 20050915
  Transmission Date: 20060218
  Serious: Yes (Other)
  Sender: FDA-Public Use
  Company Number: 2005131212

PATIENT
  Age: 65 Year
  Sex: Male

DRUGS (4)
  1. ACCUPRIL [Suspect]
     Indication: ILL-DEFINED DISORDER
     Dates: end: 20041201
  2. ADALAT OROS (NIFEDIPINE) [Concomitant]
  3. SIMVASTATIN [Concomitant]
  4. TIMOPTOL-XE (TIMOLOL MALEATE) [Concomitant]

REACTIONS (7)
  - BLOOD CHOLESTEROL INCREASED [None]
  - CEREBROVASCULAR ACCIDENT [None]
  - DYSPHEMIA [None]
  - GLAUCOMA [None]
  - HYPERTENSION [None]
  - NEOPLASM RECURRENCE [None]
  - SQUAMOUS CELL CARCINOMA [None]
